FAERS Safety Report 21990744 (Version 1)
Quarter: 2023Q1

REPORT INFORMATION
  Report Type: Spontaneous
  Country: US (occurrence: US)
  Receive Date: 20230214
  Receipt Date: 20230214
  Transmission Date: 20230418
  Serious: No
  Sender: FDA-Public Use
  Company Number: US-BIOGEN-2022BI01177726

PATIENT
  Age: 40 Year
  Sex: Male

DRUGS (7)
  1. VUMERITY [Suspect]
     Active Substance: DIROXIMEL FUMARATE
     Indication: Multiple sclerosis
     Dosage: TAKE 2 CAPSULES (462MG) BY MOUTH TWICE DAILY.
     Route: 050
     Dates: start: 20221216
  2. VUMERITY [Suspect]
     Active Substance: DIROXIMEL FUMARATE
     Route: 050
     Dates: start: 20221209, end: 20221215
  3. ASPIRIN [Concomitant]
     Active Substance: ASPIRIN
     Route: 050
  4. ROSUVASTATIN CALCIUM [Concomitant]
     Active Substance: ROSUVASTATIN CALCIUM
     Route: 050
  5. LEVOTHYROXINE SODIUM [Concomitant]
     Active Substance: LEVOTHYROXINE SODIUM
     Route: 050
  6. BACLOFEN [Concomitant]
     Active Substance: BACLOFEN
     Route: 050
  7. OMEPRAZOLE [Concomitant]
     Active Substance: OMEPRAZOLE
     Route: 050

REACTIONS (2)
  - Product dose omission in error [Unknown]
  - Pruritus [Recovered/Resolved]

NARRATIVE: CASE EVENT DATE: 20230107
